FAERS Safety Report 12154914 (Version 1)
Quarter: 2016Q1

REPORT INFORMATION
  Report Type: Spontaneous
  Country: US (occurrence: None)
  Receive Date: 20160304
  Receipt Date: 20160304
  Transmission Date: 20160526
  Serious: No
  Sender: FDA-Public Use
  Company Number: None

PATIENT
  Age: 31 Year
  Sex: Female

DRUGS (1)
  1. STELARA [Suspect]
     Active Substance: USTEKINUMAB
     Indication: PSORIASIS
     Dosage: 45MG EVERY 12 WEEKS SQ
     Route: 058
     Dates: start: 20151006

REACTIONS (5)
  - Mood swings [None]
  - Sinus headache [None]
  - Asthenia [None]
  - Visual impairment [None]
  - Back pain [None]

NARRATIVE: CASE EVENT DATE: 20160228
